FAERS Safety Report 20392999 (Version 3)
Quarter: 2023Q1

REPORT INFORMATION
  Report Type: Report from Study
  Country: DE (occurrence: DE)
  Receive Date: 20220128
  Receipt Date: 20230310
  Transmission Date: 20230417
  Serious: Yes (Other)
  Sender: FDA-Public Use
  Company Number: DE-TAKEDA-2022TUS004213

PATIENT
  Age: 41 Year
  Sex: Female

DRUGS (11)
  1. TEDUGLUTIDE [Suspect]
     Active Substance: TEDUGLUTIDE
     Indication: Short-bowel syndrome
     Dosage: 5 MILLIGRAM, QD
     Route: 042
     Dates: start: 20150410
  2. TEDUGLUTIDE [Suspect]
     Active Substance: TEDUGLUTIDE
     Indication: Short-bowel syndrome
     Dosage: 5 MILLIGRAM, QD
     Route: 042
     Dates: start: 20150410
  3. TEDUGLUTIDE [Suspect]
     Active Substance: TEDUGLUTIDE
     Indication: Short-bowel syndrome
     Dosage: 5 MILLIGRAM, QD
     Route: 042
     Dates: start: 20150410
  4. TEDUGLUTIDE [Suspect]
     Active Substance: TEDUGLUTIDE
     Indication: Short-bowel syndrome
     Dosage: 5 MILLIGRAM, QD
     Route: 042
     Dates: start: 20150410
  5. IMDEVIMAB [Concomitant]
     Active Substance: IMDEVIMAB
     Indication: COVID-19
     Dosage: 999 UNK
     Route: 065
     Dates: start: 20211210, end: 202112
  6. RIFAXIMAX [Concomitant]
     Indication: Diarrhoea
     Dosage: 400 MILLIGRAM, BID
     Route: 048
     Dates: start: 201902
  7. TINCTURA ABSINTHI [Concomitant]
     Indication: Gastroenteritis radiation
     Dosage: 100 MILLIGRAM, Q6HR
     Route: 048
     Dates: start: 201511, end: 201701
  8. TINCTURA ABSINTHI [Concomitant]
     Dosage: 200 MILLIGRAM, Q6HR
     Route: 048
     Dates: start: 201701
  9. COTRIM [Concomitant]
     Active Substance: SULFAMETHOXAZOLE\TRIMETHOPRIM
     Indication: Urinary tract infection
     Dosage: 999 UNK
     Route: 065
     Dates: start: 202208, end: 20220826
  10. IMODIUM [Concomitant]
     Active Substance: LOPERAMIDE HYDROCHLORIDE
     Indication: Bowel movement irregularity
     Dosage: UNK
     Route: 048
     Dates: start: 20230203
  11. PSYLLIUM HUSKS [Concomitant]
     Active Substance: PSYLLIUM HUSK
     Indication: Bowel movement irregularity
     Dosage: UNK UNK, BID
     Route: 048
     Dates: start: 20230203

REACTIONS (3)
  - Heart rate abnormal [Recovered/Resolved]
  - Protein deficiency [Recovered/Resolved]
  - Oedema [Recovered/Resolved]

NARRATIVE: CASE EVENT DATE: 20210305
